FAERS Safety Report 6895478-8 (Version None)
Quarter: 2010Q3

REPORT INFORMATION
  Report Type: 
  Country: None (occurrence: None)
  Receive Date: 20100802
  Receipt Date: 20100723
  Transmission Date: 20110219
  Serious: Yes (Hospitalization)
  Sender: FDA-Public Use
  Company Number: PHHO2010FR11303

PATIENT
  Age: 18 Year
  Sex: Female

DRUGS (2)
  1. TEGRETOL [Suspect]
     Indication: EPILEPSY
     Dosage: UNK
     Dates: start: 20010301, end: 20060101
  2. SOMATROPIN [Concomitant]
     Dosage: 13.3MG, PER DAY
     Dates: start: 19961202

REACTIONS (2)
  - ASTHENIA [None]
  - CONSTIPATION [None]
